FAERS Safety Report 9927949 (Version 2)
Quarter: 2014Q1

REPORT INFORMATION
  Report Type: Spontaneous
  Country: US (occurrence: US)
  Receive Date: 20140227
  Receipt Date: 20140306
  Transmission Date: 20141002
  Serious: No
  Sender: FDA-Public Use
  Company Number: US-PFIZER INC-2014055938

PATIENT
  Sex: Female

DRUGS (3)
  1. CAMPTOSAR [Suspect]
     Dosage: UNK
  2. CAMPTOSAR [Suspect]
  3. CAMPTOSAR [Suspect]

REACTIONS (3)
  - Product quality issue [Unknown]
  - Chest pain [Unknown]
  - Chest discomfort [Unknown]
